FAERS Safety Report 9741698 (Version 2)
Quarter: 2013Q4

REPORT INFORMATION
  Report Type: Spontaneous
  Country: GB (occurrence: GB)
  Receive Date: 20131210
  Receipt Date: 20131210
  Transmission Date: 20140711
  Serious: Yes (Other)
  Sender: FDA-Public Use
  Company Number: GB-JNJFOC-20131107104

PATIENT
  Age: 63 Year
  Sex: Male
  Weight: 85.72 kg

DRUGS (8)
  1. SIMPONI [Suspect]
     Indication: ANKYLOSING SPONDYLITIS
     Route: 058
     Dates: start: 201309, end: 20131031
  2. SIMVASTATIN [Concomitant]
     Route: 065
  3. LOPERAMIDE [Concomitant]
     Route: 065
  4. RANITIDINE [Concomitant]
     Route: 065
  5. TRAMADOL [Concomitant]
     Route: 065
  6. ALENDRONIC ACID [Concomitant]
     Route: 065
  7. PENTASA [Concomitant]
     Route: 065
  8. AZATHIOPRINE [Concomitant]
     Route: 065

REACTIONS (4)
  - Urticaria [Recovered/Resolved]
  - Rash [Recovered/Resolved]
  - Foreign body sensation in eyes [Not Recovered/Not Resolved]
  - Lacrimation increased [Not Recovered/Not Resolved]
